FAERS Safety Report 7225414-6 (Version None)
Quarter: 2011Q1

REPORT INFORMATION
  Report Type: 
  Country: None (occurrence: None)
  Receive Date: 20110107
  Receipt Date: 20110107
  Transmission Date: 20110831
  Serious: Yes (Other)
  Sender: FDA-Public Use
  Company Number: None

PATIENT
  Age: 32 Year
  Sex: Male
  Weight: 63.6 kg

DRUGS (2)
  1. DIPHENHYDRAMINE HCL [Suspect]
     Dosage: 25 MG TID PO
     Route: 048
     Dates: start: 20101130, end: 20101212
  2. GEODON [Suspect]
     Dosage: 80 MG BID PO
     Route: 048
     Dates: start: 20101206, end: 20101212

REACTIONS (2)
  - PSYCHOTIC DISORDER [None]
  - AGGRESSION [None]
